FAERS Safety Report 19430148 (Version 1)
Quarter: 2021Q2

REPORT INFORMATION
  Report Type: Spontaneous
  Country: SE (occurrence: SE)
  Receive Date: 20210617
  Receipt Date: 20210617
  Transmission Date: 20210717
  Serious: Yes (Other)
  Sender: FDA-Public Use
  Company Number: SE-TEVA-2021-SE-1922760

PATIENT
  Age: 79 Year
  Sex: Female

DRUGS (1)
  1. KLINDAMYCIN [Suspect]
     Active Substance: CLINDAMYCIN PHOSPHATE
     Indication: DIABETIC FOOT INFECTION
     Dates: start: 2021, end: 2021

REACTIONS (2)
  - Pruritus [Unknown]
  - Drug eruption [Unknown]

NARRATIVE: CASE EVENT DATE: 2021
